FAERS Safety Report 24882744 (Version 1)
Quarter: 2025Q1

REPORT INFORMATION
  Report Type: Spontaneous
  Country: IT (occurrence: IT)
  Receive Date: 20250124
  Receipt Date: 20250124
  Transmission Date: 20250409
  Serious: Yes (Other)
  Sender: AMGEN
  Company Number: IT-AMGEN-ITASP2025008352

PATIENT

DRUGS (3)
  1. ADALIMUMAB [Suspect]
     Active Substance: ADALIMUMAB
     Indication: Crohn^s disease
     Route: 065
  2. ADALIMUMAB [Suspect]
     Active Substance: ADALIMUMAB
     Indication: Colitis ulcerative
  3. ADALIMUMAB [Suspect]
     Active Substance: ADALIMUMAB
     Indication: Pouchitis

REACTIONS (21)
  - Colitis ulcerative [Unknown]
  - Anastomotic leak [Unknown]
  - Small intestinal obstruction [Unknown]
  - Inflammatory bowel disease [Unknown]
  - Anastomotic stenosis [Unknown]
  - Anal stenosis [Unknown]
  - Colorectal cancer [Unknown]
  - Neoplasm malignant [Unknown]
  - Pelvic sepsis [Unknown]
  - Deep vein thrombosis [Unknown]
  - Gastrointestinal haemorrhage [Unknown]
  - Intestinal perforation [Unknown]
  - Pulmonary embolism [Unknown]
  - Drug ineffective [Unknown]
  - Pouchitis [Unknown]
  - Incisional hernia [Unknown]
  - Cuffitis [Unknown]
  - Dysplasia [Unknown]
  - Anal fissure [Unknown]
  - Haemorrhoids [Unknown]
  - Neuroendocrine tumour [Unknown]
